FAERS Safety Report 4352925-3 (Version None)
Quarter: 2004Q2

REPORT INFORMATION
  Report Type: 
  Country: None (occurrence: None)
  Receive Date: 20040429
  Receipt Date: 20040420
  Transmission Date: 20050107
  Serious: Yes (Hospitalization)
  Sender: FDA-Public Use
  Company Number: K200400594

PATIENT
  Age: 68 Year
  Sex: Female

DRUGS (13)
  1. ALTACE [Suspect]
     Indication: ANGINA PECTORIS
     Dosage: ORAL
     Route: 048
     Dates: start: 20031212, end: 20031220
  2. BRICANYL [Concomitant]
  3. LASIX RETARD (FUROSEMIDE) CAPSULE [Concomitant]
  4. PULMICORT [Concomitant]
  5. SEVRENT (SALMETEROL XINAFOATE) [Concomitant]
  6. LAKTULOSE ^DAK^ (LACTULOSE0 [Concomitant]
  7. LEVAXIN (LEVOTHYROXINE SODIUM) TABLET [Concomitant]
  8. SPIRONOLACTONE (SPIRONOLACTONE) TABLET [Concomitant]
  9. ASPIRIN [Concomitant]
  10. ACETYLCYSTEINE (ACETYLCYSTEINE) TABLET [Concomitant]
  11. METFORMIN (METFORMIN) TABLET [Concomitant]
  12. CARDIZEM (DILTIAZME HYDROCHLORIDE) TABLET [Concomitant]
  13. PLAVIX [Concomitant]

REACTIONS (5)
  - CHEST PAIN [None]
  - COUGH [None]
  - DIZZINESS [None]
  - DYSPNOEA [None]
  - NAUSEA [None]
